FAERS Safety Report 22008960 (Version 1)
Quarter: 2023Q1

REPORT INFORMATION
  Report Type: Spontaneous
  Country: JP (occurrence: JP)
  Receive Date: 20230220
  Receipt Date: 20230220
  Transmission Date: 20230418
  Serious: Yes (Other)
  Sender: FDA-Public Use
  Company Number: JP-PFIZER INC-PV202300028710

PATIENT
  Sex: Female

DRUGS (1)
  1. ENBREL [Suspect]
     Active Substance: ETANERCEPT
     Indication: Product used for unknown indication
     Dosage: UNK, ONCE EVERY 10 DAYS
     Route: 058
     Dates: start: 20230212

REACTIONS (2)
  - Sudden hearing loss [Unknown]
  - Off label use [Unknown]

NARRATIVE: CASE EVENT DATE: 20230201
